FAERS Safety Report 24429240 (Version 6)
Quarter: 2025Q1

REPORT INFORMATION
  Report Type: Report from Study
  Country: US (occurrence: US)
  Receive Date: 20241011
  Receipt Date: 20250204
  Transmission Date: 20250408
  Serious: Yes (Other)
  Sender: UCB
  Company Number: US-UCBSA-2024039911

PATIENT
  Sex: Male

DRUGS (2)
  1. ROZANOLIXIZUMAB [Suspect]
     Active Substance: ROZANOLIXIZUMAB
     Indication: Myasthenia gravis
     Dosage: 280MG/2ML VIAL WEEKLY (1ST CYCLE)
     Route: 058
     Dates: start: 20240710
  2. ROZANOLIXIZUMAB [Suspect]
     Active Substance: ROZANOLIXIZUMAB
     Route: 058
     Dates: start: 20241029

REACTIONS (14)
  - Myasthenia gravis [Recovered/Resolved with Sequelae]
  - Hernia [Not Recovered/Not Resolved]
  - Hernia repair [Recovering/Resolving]
  - Disturbance in attention [Recovering/Resolving]
  - Fall [Recovering/Resolving]
  - Constipation [Recovering/Resolving]
  - Visual impairment [Recovered/Resolved with Sequelae]
  - Vision blurred [Recovered/Resolved with Sequelae]
  - Eye infection [Recovering/Resolving]
  - COVID-19 [Recovering/Resolving]
  - Productive cough [Not Recovered/Not Resolved]
  - Wrong technique in product usage process [Unknown]
  - Inappropriate schedule of product administration [Unknown]
  - Drug ineffective [Unknown]

NARRATIVE: CASE EVENT DATE: 20240101
